FAERS Safety Report 12276999 (Version 1)
Quarter: 2016Q2

REPORT INFORMATION
  Report Type: Spontaneous
  Country: FR (occurrence: FR)
  Receive Date: 20160418
  Receipt Date: 20160418
  Transmission Date: 20160815
  Serious: Yes (Hospitalization, Other)
  Sender: FDA-Public Use
  Company Number: FR-PFIZER INC-2016208904

PATIENT
  Age: 85 Year
  Sex: Female

DRUGS (15)
  1. EUPANTOL [Suspect]
     Active Substance: PANTOPRAZOLE SODIUM
     Dosage: UNK
  2. EUPRESSYL /00631801/ [Concomitant]
     Active Substance: URAPIDIL
     Dosage: 30 MG, 2X/DAY
  3. SERESTA [Concomitant]
     Active Substance: OXAZEPAM
     Dosage: UNK, AS NEEDED
  4. EUPANTOL [Suspect]
     Active Substance: PANTOPRAZOLE SODIUM
     Indication: PROPHYLAXIS
     Dosage: 20 MG, DAILY
     Route: 048
     Dates: start: 20160218
  5. IMODIUM [Concomitant]
     Active Substance: LOPERAMIDE HYDROCHLORIDE
     Dosage: UNK
  6. SPIRIVA [Concomitant]
     Active Substance: TIOTROPIUM BROMIDE MONOHYDRATE
     Dosage: UNK
  7. COLCHICINE. [Suspect]
     Active Substance: COLCHICINE
     Indication: GOUT
     Dosage: 2 MG, DAILY
     Route: 048
     Dates: start: 20160222
  8. NOROXINE [Suspect]
     Active Substance: NORFLOXACIN
     Indication: CYSTITIS
     Dosage: 400 MG, DAILY
     Route: 048
     Dates: start: 20160220, end: 20160306
  9. LASILIX /00032601/ [Concomitant]
     Active Substance: FUROSEMIDE
     Dosage: 40 MG, 2X/DAY
  10. BECOTIDE [Concomitant]
     Active Substance: BECLOMETHASONE DIPROPIONATE
     Dosage: UNK
  11. BISOPROLOL [Concomitant]
     Active Substance: BISOPROLOL
     Dosage: 2.5 MG, 2X/DAY
  12. DOLIPRANE [Concomitant]
     Active Substance: ACETAMINOPHEN
     Dosage: UNK
  13. PREVISCAN /00789001/ [Concomitant]
     Active Substance: FLUINDIONE
     Dosage: UNK
  14. COLCHICINE. [Suspect]
     Active Substance: COLCHICINE
     Dosage: 1 MG, DAILY
     Dates: end: 20160303
  15. ALDACTONE [Concomitant]
     Active Substance: SPIRONOLACTONE
     Dosage: 12.5 MG, DAILY

REACTIONS (8)
  - Dehydration [Unknown]
  - Disseminated intravascular coagulation [Not Recovered/Not Resolved]
  - Hyponatraemia [Unknown]
  - Lymphopenia [Unknown]
  - Hepatocellular injury [Not Recovered/Not Resolved]
  - Acute prerenal failure [Not Recovered/Not Resolved]
  - Diarrhoea [Unknown]
  - Metabolic acidosis [Unknown]

NARRATIVE: CASE EVENT DATE: 20160311
